FAERS Safety Report 23139958 (Version 2)
Quarter: 2023Q4

REPORT INFORMATION
  Report Type: Spontaneous
  Country: US (occurrence: US)
  Receive Date: 20231102
  Receipt Date: 20231121
  Transmission Date: 20240109
  Serious: No
  Sender: FDA-Public Use
  Company Number: US-AVADEL CNS PHARMACEUTICALS, LLC-2023AVA00297

PATIENT
  Sex: Female

DRUGS (30)
  1. LUMRYZ [Suspect]
     Active Substance: SODIUM OXYBATE
     Indication: Narcolepsy
     Dosage: 4.5 G, ONCE NIGHTLY AT BEDTIME
     Dates: start: 202308
  2. LUMRYZ [Suspect]
     Active Substance: SODIUM OXYBATE
     Indication: Cataplexy
  3. WAKIX [Concomitant]
     Active Substance: PITOLISANT HYDROCHLORIDE
  4. BENADRYL [Concomitant]
     Active Substance: DIPHENHYDRAMINE HYDROCHLORIDE
  5. SODIUM CHLORIDE [Concomitant]
     Active Substance: SODIUM CHLORIDE
  6. FAMOTIDINE [Concomitant]
     Active Substance: FAMOTIDINE
  7. BENTYL [Concomitant]
     Active Substance: DICYCLOMINE HYDROCHLORIDE
  8. ZYRTEC [Concomitant]
     Active Substance: CETIRIZINE HYDROCHLORIDE
  9. LANSOPRAZOLE [Concomitant]
     Active Substance: LANSOPRAZOLE
  10. ADDERALL [Concomitant]
     Active Substance: AMPHETAMINE ASPARTATE\AMPHETAMINE SULFATE\DEXTROAMPHETAMINE SACCHARATE\DEXTROAMPHETAMINE SULFATE
  11. KYLEENA [Concomitant]
     Active Substance: LEVONORGESTREL
  12. HERBALS [Concomitant]
     Active Substance: HERBALS
  13. GINKGO [Concomitant]
     Active Substance: GINKGO
  14. LAMICTAL [Concomitant]
     Active Substance: LAMOTRIGINE
  15. ZINC-15 [Concomitant]
  16. SCOPOLAMINE [Concomitant]
     Active Substance: SCOPOLAMINE
  17. FOCALIN [Concomitant]
     Active Substance: DEXMETHYLPHENIDATE HYDROCHLORIDE
  18. AIMOVIG [Concomitant]
     Active Substance: ERENUMAB-AOOE
  19. VITAMINS NOS [Concomitant]
     Active Substance: VITAMINS
  20. VITAMIN B12 [Concomitant]
     Active Substance: CYANOCOBALAMIN
  21. XYREM [Concomitant]
     Active Substance: SODIUM OXYBATE
  22. MELATONIN;THEANINE [Concomitant]
  23. GABAPENTIN [Concomitant]
     Active Substance: GABAPENTIN
  24. LEVSIN SL [Concomitant]
     Active Substance: HYOSCYAMINE SULFATE
  25. PRAMIPEXOLE DIHYDROCHLORIDE [Concomitant]
     Active Substance: PRAMIPEXOLE DIHYDROCHLORIDE
  26. MODAFINIL [Concomitant]
     Active Substance: MODAFINIL
  27. ZOLOFT [Concomitant]
     Active Substance: SERTRALINE HYDROCHLORIDE
  28. PROPRANOLOL HYDROCHLORIDE [Concomitant]
     Active Substance: PROPRANOLOL HYDROCHLORIDE
  29. PROBIOTIC 10 BILLION DAILY MAINTENANCE [Concomitant]
  30. MIDODRINE HYDROCHLORIDE [Concomitant]
     Active Substance: MIDODRINE HYDROCHLORIDE

REACTIONS (1)
  - No adverse event [Recovered/Resolved]

NARRATIVE: CASE EVENT DATE: 20230101
